FAERS Safety Report 8532692-X (Version None)
Quarter: 2012Q3

REPORT INFORMATION
  Report Type: 
  Country: None (occurrence: None)
  Receive Date: 20120724
  Receipt Date: 20120717
  Transmission Date: 20120928
  Serious: Yes (Other)
  Sender: FDA-Public Use
  Company Number: PHHY2012JP062489

PATIENT
  Age: 32 Year
  Sex: Female

DRUGS (1)
  1. NEORAL [Suspect]
     Indication: PROPHYLAXIS AGAINST GRAFT VERSUS HOST DISEASE

REACTIONS (2)
  - POST TRANSPLANT DISTAL LIMB SYNDROME [None]
  - PAIN IN EXTREMITY [None]
